FAERS Safety Report 6656511-1 (Version None)
Quarter: 2010Q1

REPORT INFORMATION
  Report Type: 
  Country: None (occurrence: None)
  Receive Date: 20100324
  Receipt Date: 20100309
  Transmission Date: 20100710
  Serious: Yes (Death)
  Sender: FDA-Public Use
  Company Number: 2010PL000034

PATIENT
  Sex: Female

DRUGS (2)
  1. LOTRONEX [Suspect]
     Indication: INFLAMMATORY BOWEL DISEASE
  2. LOTRONEX [Suspect]
     Indication: IRRITABLE BOWEL SYNDROME

REACTIONS (2)
  - SEPTIC SHOCK [None]
  - SMALL INTESTINAL PERFORATION [None]
